FAERS Safety Report 6632835-9 (Version None)
Quarter: 2010Q1

REPORT INFORMATION
  Report Type: 
  Country: None (occurrence: None)
  Receive Date: 20100312
  Receipt Date: 20100209
  Transmission Date: 20100710
  Serious: No
  Sender: FDA-Public Use
  Company Number: US-BIOGENIDEC-2010BI004432

PATIENT
  Age: 65 Year
  Sex: Female

DRUGS (3)
  1. AVONEX [Suspect]
     Indication: MULTIPLE SCLEROSIS
     Route: 030
     Dates: end: 20100126
  2. AVONEX [Suspect]
     Route: 030
     Dates: start: 20100126, end: 20100202
  3. AVONEX [Suspect]
     Route: 030
     Dates: start: 20100202

REACTIONS (3)
  - DIZZINESS [None]
  - INCORRECT DRUG DOSAGE FORM ADMINISTERED [None]
  - MOBILITY DECREASED [None]
